FAERS Safety Report 5041697-5 (Version None)
Quarter: 2006Q2

REPORT INFORMATION
  Report Type: 
  Country: None (occurrence: None)
  Receive Date: 20060630
  Receipt Date: 20060619
  Transmission Date: 20061013
  Serious: Yes (Other)
  Sender: FDA-Public Use
  Company Number: S06-USA-02465-01

PATIENT
  Age: 79 Year
  Sex: Female

DRUGS (13)
  1. TIAZAC [Suspect]
     Dosage: 300 MG QD; PO
     Route: 048
     Dates: start: 20030101, end: 20050901
  2. DILTIAZEM HYDROCHLORIDE [Suspect]
     Dosage: 300 MG QD; PO
     Route: 048
     Dates: start: 20050901
  3. GLYCERYL TRINITRATE [Concomitant]
  4. BRIMONIDINE TARTRATE [Concomitant]
  5. FORMOTEROL WITH BUDESONIDE [Concomitant]
  6. TIOTROPIUM BROMIDE [Concomitant]
  7. ALBUTEROL SPIROS [Concomitant]
  8. SIMVASTATIN [Concomitant]
  9. LANSOPRAZOLE [Concomitant]
  10. VITAMINS PLUS IRON (NOS) [Concomitant]
  11. ASPIRIN [Concomitant]
  12. MONELUKAST [Concomitant]
  13. DYAZIDE [Concomitant]

REACTIONS (3)
  - COLON CANCER [None]
  - OXYGEN SATURATION DECREASED [None]
  - TOTAL LUNG CAPACITY DECREASED [None]
